FAERS Safety Report 7281761 (Version 9)
Quarter: 2014Q3

REPORT INFORMATION
  Report Type: Spontaneous
  Country: US (occurrence: US)
  Receive Date: 20091201
  Receipt Date: 20140827
  Transmission Date: 20150326
  Serious: Yes (Hospitalization, Disabling, Other)
  Sender: FDA-Public Use
  Company Number: US-009507513-2009-189370-NL

PATIENT
  Sex: Female
  Weight: 106.6 kg

DRUGS (5)
  1. NUVARING [Suspect]
     Active Substance: ETHINYL ESTRADIOL\ETONOGESTREL
     Indication: CONTRACEPTION
     Dosage: DOSE TEXT: 3 WEEKS EVERY MONTH, CONTINUING: NO
     Route: 067
     Dates: start: 200603, end: 200612
  2. LEVOXYL [Concomitant]
     Active Substance: LEVOTHYROXINE SODIUM
  3. PROVENTIL [Concomitant]
     Active Substance: ALBUTEROL
     Indication: BRONCHITIS
     Dosage: UNK UNK, PRN
  4. SINGULAIR [Concomitant]
     Active Substance: MONTELUKAST SODIUM
     Dosage: 10 MG, QD
     Route: 048
  5. SYNTHROID [Concomitant]
     Active Substance: LEVOTHYROXINE SODIUM
     Indication: GOITRE
     Dosage: 50 ?G, UNK
     Route: 048
     Dates: start: 200602

REACTIONS (27)
  - Osteoarthritis [Unknown]
  - Anaemia [Unknown]
  - Insomnia [Unknown]
  - Epicondylitis [Unknown]
  - Muscle strain [Unknown]
  - Birth mark [Unknown]
  - Sciatica [Unknown]
  - Acrochordon [Unknown]
  - Vena cava filter insertion [Unknown]
  - Ovarian cyst ruptured [Unknown]
  - Rhinitis allergic [Unknown]
  - Deep vein thrombosis [Recovered/Resolved with Sequelae]
  - Tinea pedis [Unknown]
  - Plantar fasciitis [Unknown]
  - Arthritis [Unknown]
  - Carpal tunnel syndrome [Unknown]
  - Nightmare [Unknown]
  - Meniscus injury [Unknown]
  - Asthma [Unknown]
  - Back pain [Unknown]
  - Gastric ulcer [Unknown]
  - Blood alkaline phosphatase increased [Unknown]
  - Conjunctivitis allergic [Unknown]
  - Restless legs syndrome [Unknown]
  - Thrombophlebitis [Unknown]
  - Gastrooesophageal reflux disease [Unknown]
  - Phlebitis [Unknown]

NARRATIVE: CASE EVENT DATE: 20060621
